FAERS Safety Report 22384431 (Version 1)
Quarter: 2023Q2

REPORT INFORMATION
  Report Type: Spontaneous
  Country: US (occurrence: US)
  Receive Date: 20230530
  Receipt Date: 20230530
  Transmission Date: 20230721
  Serious: Yes (Hospitalization)
  Sender: FDA-Public Use
  Company Number: US-MYLANLABS-2023M1054825

PATIENT
  Age: 41 Year
  Sex: Male

DRUGS (6)
  1. IFOSFAMIDE [Suspect]
     Active Substance: IFOSFAMIDE
     Indication: Neoplasm malignant
     Dosage: UNK, 2 CYCLES
     Route: 065
  2. IFOSFAMIDE [Suspect]
     Active Substance: IFOSFAMIDE
     Indication: Fibromyxoma
  3. DOXORUBICIN [Suspect]
     Active Substance: DOXORUBICIN
     Indication: Neoplasm malignant
     Dosage: UNK, 2 CYCLES
     Route: 065
  4. DOXORUBICIN [Suspect]
     Active Substance: DOXORUBICIN
     Indication: Fibromyxoma
  5. MESNA [Suspect]
     Active Substance: MESNA
     Indication: Neoplasm malignant
     Dosage: UNK, 2 CYCLES
     Route: 065
  6. MESNA [Suspect]
     Active Substance: MESNA
     Indication: Fibromyxoma

REACTIONS (1)
  - Drug ineffective [Unknown]
